FAERS Safety Report 15426237 (Version 2)
Quarter: 2018Q3

REPORT INFORMATION
  Report Type: Spontaneous
  Country: CR (occurrence: CR)
  Receive Date: 20180925
  Receipt Date: 20180928
  Transmission Date: 20181010
  Serious: Yes (Other)
  Sender: FDA-Public Use
  Company Number: CR-ASTRAZENECA-2018SF20243

PATIENT
  Age: 60 Year
  Sex: Female

DRUGS (5)
  1. ALBUTEROL. [Concomitant]
     Active Substance: ALBUTEROL
  2. SYMBICORT [Suspect]
     Active Substance: BUDESONIDE\FORMOTEROL FUMARATE DIHYDRATE
     Indication: ASTHMA
     Dosage: FOR 6 YEARS, A PUFF IN THE MORNING AND ONE AT NIGHT GENERALLY
     Route: 055
  3. MONTELUKAST [Concomitant]
     Active Substance: MONTELUKAST SODIUM
  4. SYMBICORT [Suspect]
     Active Substance: BUDESONIDE\FORMOTEROL FUMARATE DIHYDRATE
     Indication: ASTHMA
     Dosage: AT TIMES, PATIENT ONLY TAKE IT ONCE A DAY
     Route: 055
  5. SYMBICORT [Suspect]
     Active Substance: BUDESONIDE\FORMOTEROL FUMARATE DIHYDRATE
     Indication: ASTHMA
     Dosage: 320/9MCG/DOSE, TWO INHALATIONS PER DAY
     Route: 055
     Dates: start: 201805

REACTIONS (4)
  - Asthmatic crisis [Unknown]
  - Drug dose omission [Unknown]
  - Device malfunction [Unknown]
  - Drug ineffective [Unknown]
